FAERS Safety Report 8830443 (Version 2)
Quarter: 2012Q4

REPORT INFORMATION
  Report Type: Report from Study
  Country: None (occurrence: US)
  Receive Date: 20121009
  Receipt Date: 20121029
  Transmission Date: 20130627
  Serious: Yes (Other)
  Sender: FDA-Public Use
  Company Number: US-ABBOTT-12P-163-0989863-00

PATIENT
  Age: 57 None
  Sex: Female

DRUGS (14)
  1. HUMIRA [Suspect]
     Indication: ANKYLOSING SPONDYLITIS
     Dates: start: 201111
  2. METHOTREXATE [Concomitant]
     Indication: ANKYLOSING SPONDYLITIS
     Dosage: 8 pills
     Route: 048
  3. FOLIC ACID [Concomitant]
     Indication: ANKYLOSING SPONDYLITIS
     Route: 048
  4. OXYCONTIN [Concomitant]
     Indication: PAIN
     Route: 048
  5. MELATONIN [Concomitant]
     Indication: INSOMNIA
     Dosage: Every night as needed
     Route: 048
  6. ALPRAZOLAM [Concomitant]
     Indication: INSOMNIA
     Dosage: At night as needed
     Route: 048
  7. VITAMIN B [Concomitant]
     Indication: VITAMIN D DECREASED
     Route: 048
  8. KELP [Concomitant]
     Indication: HYPOTHYROIDISM
     Dosage: Amount taken depends on diet
  9. KELP [Concomitant]
     Indication: GOITRE
  10. KELP [Concomitant]
     Indication: MINERAL SUPPLEMENTATION
  11. LACTULOSE [Concomitant]
     Indication: CONSTIPATION
     Dosage: Once a day as needed
  12. PSYLLIUM [Concomitant]
     Indication: CONSTIPATION
     Dosage: once a day as needed
  13. RESTASIS [Concomitant]
     Indication: UVEITIS
  14. ESTRACE [Concomitant]
     Indication: ATROPHIC VULVOVAGINITIS
     Dosage: 0.5 ML EVERY OTHER WEEK

REACTIONS (7)
  - Tooth fracture [Not Recovered/Not Resolved]
  - Vitamin D decreased [Not Recovered/Not Resolved]
  - Laceration [Not Recovered/Not Resolved]
  - Impaired healing [Not Recovered/Not Resolved]
  - Gingival bleeding [Not Recovered/Not Resolved]
  - Animal scratch [Not Recovered/Not Resolved]
  - Wound haemorrhage [Recovered/Resolved]
